FAERS Safety Report 8042797-8 (Version None)
Quarter: 2012Q1

REPORT INFORMATION
  Report Type: 
  Country: None (occurrence: None)
  Receive Date: 20120112
  Receipt Date: 20120110
  Transmission Date: 20120608
  Serious: Yes (Other)
  Sender: FDA-Public Use
  Company Number: US-VERTEX PHARMACEUTICALS INC.-AE-2011-003146

PATIENT
  Sex: Male
  Weight: 105.33 kg

DRUGS (4)
  1. INTERFERON [Concomitant]
     Indication: HEPATITIS C
     Route: 058
     Dates: start: 20110906
  2. ASPIRIN [Concomitant]
     Route: 048
  3. INCIVEK [Suspect]
     Indication: HEPATITIS C
     Route: 048
     Dates: start: 20110906, end: 20111103
  4. RIBAVIRIN [Concomitant]
     Indication: HEPATITIS C
     Route: 048
     Dates: start: 20110906

REACTIONS (11)
  - HEART RATE INCREASED [None]
  - FACE OEDEMA [None]
  - WHEEZING [None]
  - MOUTH ULCERATION [None]
  - PYREXIA [None]
  - URINE OUTPUT DECREASED [None]
  - WEIGHT INCREASED [None]
  - DYSPNOEA [None]
  - DRUG RASH WITH EOSINOPHILIA AND SYSTEMIC SYMPTOMS [None]
  - OEDEMA PERIPHERAL [None]
  - FLUID RETENTION [None]
